APPROVED DRUG PRODUCT: LACOSAMIDE
Active Ingredient: LACOSAMIDE
Strength: 100MG
Dosage Form/Route: TABLET;ORAL
Application: A204857 | Product #002
Applicant: AMNEAL PHARMACEUTICALS OF NEW YORK LLC
Approved: Mar 17, 2022 | RLD: No | RS: No | Type: DISCN